FAERS Safety Report 13191787 (Version 1)
Quarter: 2017Q1

REPORT INFORMATION
  Report Type: Spontaneous
  Country: IT (occurrence: IT)
  Receive Date: 20170207
  Receipt Date: 20170207
  Transmission Date: 20170428
  Serious: Yes (Hospitalization)
  Sender: FDA-Public Use
  Company Number: IT-AUROBINDO-AUR-APL-2017-29236

PATIENT
  Age: 39 Year
  Sex: Male

DRUGS (1)
  1. SERTRALINE AUROBINDO FILM-COATED TABLETS 50 MG [Suspect]
     Active Substance: SERTRALINE HYDROCHLORIDE
     Indication: PRODUCT USED FOR UNKNOWN INDICATION
     Dosage: 700 MG, UNK
     Route: 065
     Dates: start: 20170108, end: 20170108

REACTIONS (3)
  - Sopor [Recovered/Resolved]
  - Airway complication of anaesthesia [Recovered/Resolved]
  - Overdose [Recovered/Resolved]

NARRATIVE: CASE EVENT DATE: 20170108
